FAERS Safety Report 13386409 (Version 1)
Quarter: 2017Q1

REPORT INFORMATION
  Report Type: Spontaneous
  Country: US (occurrence: US)
  Receive Date: 20170330
  Receipt Date: 20170330
  Transmission Date: 20170429
  Serious: No
  Sender: FDA-Public Use
  Company Number: US-BEH-2017079187

PATIENT
  Age: 19 Year
  Sex: Male

DRUGS (1)
  1. STIMATE [Suspect]
     Active Substance: DESMOPRESSIN ACETATE
     Indication: PLATELET DYSFUNCTION
     Dosage: 300 ?G, PRN
     Route: 045
     Dates: start: 20130312

REACTIONS (1)
  - Epistaxis [Unknown]
